FAERS Safety Report 23044450 (Version 1)
Quarter: 2023Q4

REPORT INFORMATION
  Report Type: Spontaneous
  Country: BR (occurrence: BR)
  Receive Date: 20231009
  Receipt Date: 20231009
  Transmission Date: 20240109
  Serious: Yes (Hospitalization, Other)
  Sender: FDA-Public Use
  Company Number: BR-CHEPLA-2023012513

PATIENT
  Sex: Male
  Weight: 52 kg

DRUGS (6)
  1. CLONAZEPAM [Suspect]
     Active Substance: CLONAZEPAM
     Indication: Nervousness
     Dosage: AFTER 6 MONTHS. MORE THAN 6 DROPS?. MORE THAN 30 YEARS (1993)
     Route: 048
     Dates: start: 1993
  2. CLONAZEPAM [Suspect]
     Active Substance: CLONAZEPAM
     Indication: Insomnia
     Dosage: AFTER 6 MONTHS. MORE THAN 6 DROPS?. MORE THAN 30 YEARS (1993)
     Route: 048
     Dates: start: 1993
  3. CLONAZEPAM [Suspect]
     Active Substance: CLONAZEPAM
     Indication: Nervousness
     Dosage: ONGOING. EVERY NIGHT
     Route: 048
     Dates: start: 2021
  4. CLONAZEPAM [Suspect]
     Active Substance: CLONAZEPAM
     Indication: Insomnia
     Dosage: ONGOING. EVERY NIGHT
     Route: 048
     Dates: start: 2021
  5. CLONAZEPAM [Suspect]
     Active Substance: CLONAZEPAM
     Indication: Nervousness
     Dosage: MORE THAN 30 YEARS.?DAILY DOSE: 6 DROP
     Route: 048
     Dates: end: 2021
  6. CLONAZEPAM [Suspect]
     Active Substance: CLONAZEPAM
     Indication: Insomnia
     Dosage: MORE THAN 30 YEARS.?DAILY DOSE: 6 DROP
     Route: 048
     Dates: end: 2021

REACTIONS (10)
  - Femoral hernia [Recovered/Resolved]
  - Diabetes mellitus [Not Recovered/Not Resolved]
  - Diverticulitis [Recovered/Resolved]
  - Drug dependence [Not Recovered/Not Resolved]
  - Memory impairment [Recovered/Resolved]
  - Paraesthesia [Recovered/Resolved]
  - Weight decreased [Not Recovered/Not Resolved]
  - Weight decreased [Not Recovered/Not Resolved]
  - Amoebiasis [Recovered/Resolved]
  - Nervousness [Not Recovered/Not Resolved]

NARRATIVE: CASE EVENT DATE: 20130101
